FAERS Safety Report 7864751-9 (Version None)
Quarter: 2011Q4

REPORT INFORMATION
  Report Type: 
  Country: None (occurrence: None)
  Receive Date: 20111028
  Receipt Date: 20100423
  Transmission Date: 20120403
  Serious: Yes (Other)
  Sender: FDA-Public Use
  Company Number: US-ENDO PHARMACEUTICALS INC.-CLOZ20110009

PATIENT
  Sex: Male

DRUGS (8)
  1. AMBIEN [Concomitant]
  2. ALBUTEROL [Concomitant]
  3. REMERON [Concomitant]
  4. CLONAZEPAM [Suspect]
     Indication: ANXIETY DISORDER
     Dosage: 1 TABLET B.I.D.
     Route: 048
     Dates: start: 20100422, end: 20100423
  5. TYLENOL-500 [Concomitant]
  6. SUPPLEMENTAL OXYGEN [Concomitant]
  7. SYMBICORT [Concomitant]
  8. TRAMADOL HCL [Concomitant]
     Indication: PAIN

REACTIONS (2)
  - INTENTIONAL OVERDOSE [None]
  - DRUG INEFFECTIVE [None]
